FAERS Safety Report 16007223 (Version 1)
Quarter: 2019Q1

REPORT INFORMATION
  Report Type: Report from Study
  Country: CA (occurrence: CA)
  Receive Date: 20190226
  Receipt Date: 20190226
  Transmission Date: 20190418
  Serious: Yes (Hospitalization, Other)
  Sender: FDA-Public Use
  Company Number: CA-PFIZER INC-2019080067

PATIENT
  Age: 12 Year
  Sex: Female

DRUGS (3)
  1. METRONIDAZOLE. [Suspect]
     Active Substance: METRONIDAZOLE
     Indication: PERINEAL ABSCESS
     Dosage: UNK
  2. REMICADE [Suspect]
     Active Substance: INFLIXIMAB
     Indication: CROHN^S DISEASE
     Dosage: 400 MG, 1 EVERY 6 WEEK (S)
     Route: 042
  3. CIPROFLOXACIN HCL [Suspect]
     Active Substance: CIPROFLOXACIN HYDROCHLORIDE
     Indication: PERINEAL ABSCESS
     Dosage: UNK

REACTIONS (4)
  - Haematochezia [Recovering/Resolving]
  - Faeces soft [Recovering/Resolving]
  - Perineal abscess [Recovering/Resolving]
  - Mucous stools [Recovering/Resolving]
